FAERS Safety Report 16776862 (Version 1)
Quarter: 2019Q3

REPORT INFORMATION
  Report Type: Report from Study
  Country: RU (occurrence: RU)
  Receive Date: 20190905
  Receipt Date: 20190905
  Transmission Date: 20191005
  Serious: Yes (Hospitalization, Other)
  Sender: FDA-Public Use
  Company Number: RU-ASTRAZENECA-2019SF24067

PATIENT
  Age: 75 Year
  Sex: Female

DRUGS (10)
  1. PHYSIOTENS [Concomitant]
     Active Substance: MOXONIDINE
  2. BRILINTA [Suspect]
     Active Substance: TICAGRELOR
     Indication: STENT PLACEMENT
     Route: 048
     Dates: start: 201811
  3. OMEPRAZOL [Concomitant]
     Active Substance: OMEPRAZOLE
  4. MOXONIDINE [Concomitant]
     Active Substance: MOXONIDINE
  5. THROMBO ASS [Concomitant]
     Active Substance: ASPIRIN
  6. CONCOR [Concomitant]
     Active Substance: BISOPROLOL FUMARATE
  7. ATORVASTATIN [Concomitant]
     Active Substance: ATORVASTATIN
  8. CORONAL [Concomitant]
  9. CARDOSAL [Concomitant]
     Active Substance: OLMESARTAN MEDOXOMIL
  10. TRIGRIM [Concomitant]
     Active Substance: TORSEMIDE

REACTIONS (9)
  - Blood disorder [Unknown]
  - Cough [Not Recovered/Not Resolved]
  - Oral pain [Not Recovered/Not Resolved]
  - Dysgeusia [Not Recovered/Not Resolved]
  - Hypertensive crisis [Recovered/Resolved]
  - Bone pain [Not Recovered/Not Resolved]
  - Liver disorder [Not Recovered/Not Resolved]
  - Dry throat [Not Recovered/Not Resolved]
  - Renal disorder [Not Recovered/Not Resolved]

NARRATIVE: CASE EVENT DATE: 201904
